FAERS Safety Report 7430978-3 (Version None)
Quarter: 2011Q2

REPORT INFORMATION
  Report Type: 
  Country: None (occurrence: None)
  Receive Date: 20110421
  Receipt Date: 20110420
  Transmission Date: 20111010
  Serious: Yes (Hospitalization)
  Sender: FDA-Public Use
  Company Number: GXKR2011DE01532

PATIENT
  Age: 50 Year
  Sex: Female

DRUGS (3)
  1. ANTISTAX ^BOEHRINGER INGELHEIM^ [Suspect]
     Dosage: UNK UKN, UNK
  2. RENACOR [Suspect]
  3. METOPROLOL [Suspect]
     Dosage: 100 MG, UNK
     Route: 048

REACTIONS (1)
  - ANGIOEDEMA [None]
